FAERS Safety Report 24700663 (Version 2)
Quarter: 2024Q4

REPORT INFORMATION
  Report Type: Spontaneous
  Country: US (occurrence: US)
  Receive Date: 20241205
  Receipt Date: 20241219
  Transmission Date: 20250115
  Serious: Yes (Other)
  Sender: ACCORD
  Company Number: US-MLMSERVICE-20241119-PI263179-00218-1

PATIENT
  Age: 41 Year
  Sex: Female

DRUGS (11)
  1. METHOTREXATE [Suspect]
     Active Substance: METHOTREXATE
     Indication: Proliferative vitreoretinopathy
     Dosage: 40 MG OF METHOTREXATE WAS PLACED INTO THE 500ML BSS POSTERIOR SEGMENT INFUSION BOTTLE
  2. DIFLUPREDNATE [Concomitant]
     Active Substance: DIFLUPREDNATE
     Indication: Aniridia
  3. BRIMONIDINE, TIMOLOL [Concomitant]
     Indication: Aniridia
  4. CYCLOSPORINE [Concomitant]
     Active Substance: CYCLOSPORINE
     Indication: Aniridia
  5. VALGANCICLOVIR HYDROCHLORIDE [Concomitant]
     Active Substance: VALGANCICLOVIR HYDROCHLORIDE
  6. PREDNISONE [Concomitant]
     Active Substance: PREDNISONE
     Dosage: TAPER
     Route: 048
  7. MYCOPHENOLIC ACID [Concomitant]
     Active Substance: MYCOPHENOLIC ACID
  8. TACROLIMUS [Concomitant]
     Active Substance: TACROLIMUS
  9. METHOTREXATE [Suspect]
     Active Substance: METHOTREXATE
     Indication: Proliferative vitreoretinopathy
     Dosage: INTRAVITREAL 200 UG/0.05ML METHOTREXATE EVERY TWO WEEKS FOR A TOTAL OF FIVE INJECTIONS
  10. METHOTREXATE [Suspect]
     Active Substance: METHOTREXATE
     Indication: Proliferative vitreoretinopathy
     Dosage: INTRAVITREAL 200 UG/0.05ML, MONTHLY INJECTIONS
  11. DIFLUPREDNATE [Concomitant]
     Active Substance: DIFLUPREDNATE
     Indication: Aniridia

REACTIONS (3)
  - Punctate keratitis [Unknown]
  - Corneal epithelium defect [Recovered/Resolved]
  - Off label use [Unknown]
